FAERS Safety Report 7202578-1 (Version None)
Quarter: 2010Q4

REPORT INFORMATION
  Report Type: 
  Country: None (occurrence: None)
  Receive Date: 20101229
  Receipt Date: 20101221
  Transmission Date: 20110411
  Serious: Yes (Hospitalization, Other)
  Sender: FDA-Public Use
  Company Number: DE-ABBOTT-10P-062-0693255-00

PATIENT
  Sex: Male
  Weight: 70 kg

DRUGS (1)
  1. HUMIRA [Suspect]
     Indication: RHEUMATOID ARTHRITIS
     Route: 058
     Dates: start: 20100701, end: 20101001

REACTIONS (5)
  - CONJUNCTIVITIS [None]
  - DYSPHAGIA [None]
  - PHARYNGITIS [None]
  - PYREXIA [None]
  - WEIGHT DECREASED [None]
